FAERS Safety Report 13351429 (Version 1)
Quarter: 2017Q1

REPORT INFORMATION
  Report Type: Spontaneous
  Country: US (occurrence: US)
  Receive Date: 20170320
  Receipt Date: 20170320
  Transmission Date: 20170429
  Serious: No
  Sender: FDA-Public Use
  Company Number: US-MYLANLABS-2017M1003331

PATIENT
  Age: 69 Year
  Sex: Female
  Weight: 47.62 kg

DRUGS (1)
  1. FROVATRIPTAN SUCCINATE TABLETS [Suspect]
     Active Substance: FROVATRIPTAN SUCCINATE
     Indication: MIGRAINE
     Dosage: 2.5 MG, PRN FOR MIGRAINE
     Route: 048
     Dates: start: 20161227, end: 201701

REACTIONS (1)
  - Drug ineffective [Recovered/Resolved]

NARRATIVE: CASE EVENT DATE: 201701
